FAERS Safety Report 5274835-X (Version None)
Quarter: 2007Q1

REPORT INFORMATION
  Report Type: 
  Country: None (occurrence: None)
  Receive Date: 20061208
  Receipt Date: 20051028
  Transmission Date: 20070707
  Serious: No
  Sender: FDA-Public Use
  Company Number: 2005UW16365

PATIENT
  Age: 70 Year
  Sex: Male

DRUGS (14)
  1. CRESTOR [Suspect]
     Dosage: 0.5 DF DAILY PO
     Route: 048
  2. NITROGLYCERIN [Concomitant]
  3. OMEPRAZOLE [Concomitant]
  4. METFORMIN HCL [Concomitant]
  5. OMEGA 3 [Concomitant]
  6. POLYUNSATURATED FATTY ACID [Concomitant]
  7. LEVOTHYROXINE SODIUM [Concomitant]
  8. ISOSORBIDE DINITRATE [Concomitant]
  9. FUROSEMIDE [Concomitant]
  10. DIGOXIN [Concomitant]
  11. CARVEDILOL [Concomitant]
  12. AMIODARONE HCL [Concomitant]
  13. NIASPAN [Concomitant]
  14. WARFARIN SODIUM [Concomitant]

REACTIONS (2)
  - BLOOD CREATININE INCREASED [None]
  - PROTEIN URINE [None]
